FAERS Safety Report 17499733 (Version 1)
Quarter: 2020Q1

REPORT INFORMATION
  Report Type: Spontaneous
  Country: GB (occurrence: GB)
  Receive Date: 20200304
  Receipt Date: 20200304
  Transmission Date: 20200409
  Serious: Yes (Hospitalization, Other)
  Sender: FDA-Public Use
  Company Number: GB-BAXTER-2020BAX004479

PATIENT
  Age: 55 Year
  Sex: Female

DRUGS (8)
  1. GLUCOSE 5% INTRAVENOUS INFUSION BP [Suspect]
     Active Substance: DEXTROSE
     Indication: BLOOD POTASSIUM INCREASED
     Dosage: UNK
     Route: 065
  2. AMITRIPTYLINE [Concomitant]
     Active Substance: AMITRIPTYLINE
     Indication: PRODUCT USED FOR UNKNOWN INDICATION
     Dosage: UNK
     Route: 065
  3. DESLORATADINE. [Concomitant]
     Active Substance: DESLORATADINE
     Indication: RHINITIS ALLERGIC
     Dosage: UNK
     Route: 065
  4. CALCIUM WITH VITAMIN D [Concomitant]
     Active Substance: CALCIUM\VITAMIN D
     Indication: PRODUCT USED FOR UNKNOWN INDICATION
     Dosage: UNK
     Route: 065
  5. SIMVASTATIN. [Concomitant]
     Active Substance: SIMVASTATIN
     Indication: PRODUCT USED FOR UNKNOWN INDICATION
     Dosage: UNK
     Route: 065
  6. ORLISTAT. [Suspect]
     Active Substance: ORLISTAT
     Indication: OBESITY
     Dosage: UNK
     Route: 065
  7. OMEPRAZOLE. [Concomitant]
     Active Substance: OMEPRAZOLE
     Indication: PRODUCT USED FOR UNKNOWN INDICATION
     Dosage: UNK
     Route: 065
  8. AMLODIPINE [Concomitant]
     Active Substance: AMLODIPINE BESYLATE
     Indication: HYPERTENSION
     Dosage: UNK
     Route: 065

REACTIONS (23)
  - Acute kidney injury [Recovering/Resolving]
  - End stage renal disease [Recovering/Resolving]
  - Drug ineffective [Unknown]
  - Hyperoxaluria [Recovered/Resolved]
  - Hypotension [Unknown]
  - Renal impairment [Recovering/Resolving]
  - Vomiting [Unknown]
  - Glomerular filtration rate decreased [Recovering/Resolving]
  - Oxalosis [Recovering/Resolving]
  - Blood pressure decreased [Unknown]
  - Renal tubular atrophy [Unknown]
  - Azotaemia [Recovering/Resolving]
  - Lethargy [Unknown]
  - Fatigue [Unknown]
  - Urine oxalate increased [Recovered/Resolved]
  - Fall [Unknown]
  - Dizziness [Unknown]
  - Nephrosclerosis [Unknown]
  - Hypophagia [Unknown]
  - Kidney fibrosis [Unknown]
  - Crystal nephropathy [Unknown]
  - Hyperkalaemia [Unknown]
  - Nutritional condition abnormal [Unknown]
